FAERS Safety Report 7544029-3 (Version None)
Quarter: 2011Q2

REPORT INFORMATION
  Report Type: 
  Country: None (occurrence: None)
  Receive Date: 20110613
  Receipt Date: 20050509
  Transmission Date: 20111010
  Serious: Yes (Other)
  Sender: FDA-Public Use
  Company Number: PHNR2005AU00859

PATIENT
  Sex: Male

DRUGS (3)
  1. CLOZAPINE [Suspect]
     Dosage: 400 MG, QD
     Route: 048
     Dates: start: 19980402
  2. FENTANYL [Concomitant]
  3. MIDAZOLAM HCL [Concomitant]

REACTIONS (2)
  - VIITH NERVE PARALYSIS [None]
  - GASTRITIS [None]
